FAERS Safety Report 8131929-9 (Version None)
Quarter: 2012Q1

REPORT INFORMATION
  Report Type: 
  Country: None (occurrence: None)
  Receive Date: 20120208
  Receipt Date: 20120127
  Transmission Date: 20120608
  Serious: Yes (Other)
  Sender: FDA-Public Use
  Company Number: DSU-2012-00713

PATIENT
  Age: 55 Year
  Sex: Female
  Weight: 72.5755 kg

DRUGS (4)
  1. ZEMPLAR (PARICALCITOL) (PARICALCITOL) [Concomitant]
  2. AZOR [Suspect]
     Indication: HYPERTENSION
     Dosage: 5/20MG (QD), PER ORAL 10/40MG ((5/20MG TABLETS) BID), PER ORAL 10/40MG (QD), PER ORAL
     Route: 048
     Dates: start: 20111101, end: 20120101
  3. AZOR [Suspect]
     Indication: HYPERTENSION
     Dosage: 5/20MG (QD), PER ORAL 10/40MG ((5/20MG TABLETS) BID), PER ORAL 10/40MG (QD), PER ORAL
     Route: 048
     Dates: start: 20120101, end: 20120101
  4. AZOR [Suspect]
     Indication: HYPERTENSION
     Dosage: 5/20MG (QD), PER ORAL 10/40MG ((5/20MG TABLETS) BID), PER ORAL 10/40MG (QD), PER ORAL
     Route: 048
     Dates: start: 20120101

REACTIONS (4)
  - HEADACHE [None]
  - CATHETER PLACEMENT [None]
  - NO THERAPEUTIC RESPONSE [None]
  - BLOOD PRESSURE INCREASED [None]
